FAERS Safety Report 17659783 (Version 3)
Quarter: 2020Q3

REPORT INFORMATION
  Report Type: Report from Study
  Country: GB (occurrence: GB)
  Receive Date: 20200413
  Receipt Date: 20200820
  Transmission Date: 20201102
  Serious: Yes (Other)
  Sender: FDA-Public Use
  Company Number: NVSC2020GB056738

PATIENT
  Sex: Male

DRUGS (11)
  1. HYRIMOZ [Suspect]
     Active Substance: ADALIMUMAB-ADAZ
     Dosage: 40 UNK (RIGHT THIGH)
     Route: 058
     Dates: start: 20200129
  2. HYRIMOZ [Suspect]
     Active Substance: ADALIMUMAB-ADAZ
     Dosage: 40 MG EOW (40MG/0.8ML SOLUTION FOR INJECTION)
     Route: 058
  3. HYRIMOZ [Suspect]
     Active Substance: ADALIMUMAB-ADAZ
     Dosage: 40 UNK (RIGHT THIGH)
     Route: 058
     Dates: start: 20200101
  4. HYRIMOZ [Suspect]
     Active Substance: ADALIMUMAB-ADAZ
     Dosage: 40 UNK (RIGHT THIGH)
     Route: 058
     Dates: start: 20200226
  5. HYRIMOZ [Suspect]
     Active Substance: ADALIMUMAB-ADAZ
     Indication: PSORIASIS
     Dosage: 40 MG, Q2W
     Route: 058
  6. HYRIMOZ [Suspect]
     Active Substance: ADALIMUMAB-ADAZ
     Dosage: 40 MG, QMO (LEFT THIGH)
     Route: 058
     Dates: start: 20191218
  7. HYRIMOZ [Suspect]
     Active Substance: ADALIMUMAB-ADAZ
     Dosage: 40 MG, BIW
     Route: 058
  8. HYRIMOZ [Suspect]
     Active Substance: ADALIMUMAB-ADAZ
     Dosage: 40 MG (40 MG 2 THIGH)
     Route: 058
     Dates: start: 20191202
  9. HYRIMOZ [Suspect]
     Active Substance: ADALIMUMAB-ADAZ
     Dosage: 40 UNK (LEFT THIGH)
     Route: 058
     Dates: start: 20200115
  10. HYRIMOZ [Suspect]
     Active Substance: ADALIMUMAB-ADAZ
     Dosage: 40 MG, UNKNOWN
     Route: 058
     Dates: start: 20200212
  11. HYRIMOZ [Suspect]
     Active Substance: ADALIMUMAB-ADAZ
     Dosage: 40 UNK (LEFT THIGH)
     Route: 058
     Dates: start: 20200311

REACTIONS (4)
  - Drug ineffective [Unknown]
  - Immunodeficiency [Not Recovered/Not Resolved]
  - Myalgia [Unknown]
  - Psoriasis [Not Recovered/Not Resolved]
